FAERS Safety Report 13950939 (Version 1)
Quarter: 2017Q3

REPORT INFORMATION
  Report Type: Spontaneous
  Country: US (occurrence: US)
  Receive Date: 20170908
  Receipt Date: 20170908
  Transmission Date: 20171128
  Serious: No
  Sender: FDA-Public Use
  Company Number: US-ROCHE-1229598

PATIENT
  Sex: Male

DRUGS (2)
  1. TREANDA [Concomitant]
     Active Substance: BENDAMUSTINE HYDROCHLORIDE
     Route: 042
  2. RITUXAN [Suspect]
     Active Substance: RITUXIMAB
     Indication: PRODUCT USED FOR UNKNOWN INDICATION
     Route: 065

REACTIONS (1)
  - Urticaria [Recovered/Resolved]
